FAERS Safety Report 18731690 (Version 1)
Quarter: 2021Q1

REPORT INFORMATION
  Report Type: Spontaneous
  Country: US (occurrence: US)
  Receive Date: 20210112
  Receipt Date: 20210112
  Transmission Date: 20210419
  Serious: No
  Sender: FDA-Public Use
  Company Number: US-BEH-2020126758

PATIENT
  Sex: Female

DRUGS (20)
  1. ZEMAIRA [Suspect]
     Active Substance: .ALPHA.1-PROTEINASE INHIBITOR HUMAN
     Indication: ALPHA-1 ANTITRYPSIN DEFICIENCY
     Dosage: 60 MILLIGRAM/KILOGRAM (=/? 10% DOSE =5X891=4455), QW
     Route: 042
  2. IPRATROPIUM [Concomitant]
     Active Substance: IPRATROPIUM
     Dosage: 0.5?2.5
  3. LOSARTAN POTASSIUM. [Concomitant]
     Active Substance: LOSARTAN POTASSIUM
  4. METOPROLOL SUCCINATE. [Concomitant]
     Active Substance: METOPROLOL SUCCINATE
     Dosage: 25 MILLIGRAM
  5. BIOTIN [Concomitant]
     Active Substance: BIOTIN
     Dosage: 10000 MICROGRAM
  6. EXEMESTANE. [Concomitant]
     Active Substance: EXEMESTANE
     Dosage: 25 MILLIGRAM
  7. LASIX [Concomitant]
     Active Substance: FUROSEMIDE
     Dosage: 20 MILLIGRAM
  8. PROTONIX [OMEPRAZOLE] [Concomitant]
     Active Substance: OMEPRAZOLE
     Dosage: 40 MILLIGRAM
  9. SINGULAIR [Concomitant]
     Active Substance: MONTELUKAST SODIUM
     Dosage: 10 MILLIGRAM
  10. NUVIGIL [Concomitant]
     Active Substance: ARMODAFINIL
     Dosage: 250 MILLIGRAM
  11. TRIAMTERENE AND HYDROCHLOROTHIAZIDE [Concomitant]
     Active Substance: HYDROCHLOROTHIAZIDE\TRIAMTERENE
  12. GABAPENTIN. [Concomitant]
     Active Substance: GABAPENTIN
     Dosage: 300 MILLIGRAM
  13. STIOLTO RESPIMAT [Concomitant]
     Active Substance: OLODATEROL HYDROCHLORIDE\TIOTROPIUM BROMIDE MONOHYDRATE
     Dosage: 2.5?2.5M
  14. DUEXIS [Concomitant]
     Active Substance: FAMOTIDINE\IBUPROFEN
     Dosage: 800?26..6MG
  15. PROAIR HFA [Concomitant]
     Active Substance: ALBUTEROL SULFATE
     Dosage: 108/90MC
  16. VITAMIN D;VITAMIN E [Concomitant]
     Dosage: 50 MCG (2
  17. CALCIUM 600 + D [Concomitant]
     Active Substance: CALCIUM\VITAMIN D
     Dosage: 600?200M
  18. VIIBRYD [Concomitant]
     Active Substance: VILAZODONE HYDROCHLORIDE
     Dosage: 40 MILLIGRAM
  19. ZEMAIRA [Suspect]
     Active Substance: .ALPHA.1-PROTEINASE INHIBITOR HUMAN
     Indication: ALPHA-1 ANTITRYPSIN DEFICIENCY
     Dosage: 60 MILLIGRAM/KILOGRAM (=/? 10% DOSE =5X891=4455), QW
     Route: 042
  20. VALACYCLOVIR [Concomitant]
     Active Substance: VALACYCLOVIR HYDROCHLORIDE

REACTIONS (5)
  - Cough [Unknown]
  - Dyspnoea [Unknown]
  - Rhinorrhoea [Unknown]
  - Nasopharyngitis [Unknown]
  - Wheezing [Unknown]
